FAERS Safety Report 12570406 (Version 1)
Quarter: 2016Q3

REPORT INFORMATION
  Report Type: Spontaneous
  Country: JP (occurrence: JP)
  Receive Date: 20160719
  Receipt Date: 20160719
  Transmission Date: 20161109
  Serious: Yes (Other)
  Sender: FDA-Public Use
  Company Number: JP-PFIZER INC-2016335170

PATIENT

DRUGS (2)
  1. CLARITH [Concomitant]
     Active Substance: CLARITHROMYCIN
  2. HALCION [Suspect]
     Active Substance: TRIAZOLAM
     Dosage: 0.125 MG, UNK
     Route: 048

REACTIONS (1)
  - Helicobacter infection [Unknown]
